FAERS Safety Report 18803114 (Version 1)
Quarter: 2021Q1

REPORT INFORMATION
  Report Type: Report from Study
  Country: US (occurrence: US)
  Receive Date: 20210129
  Receipt Date: 20210129
  Transmission Date: 20210419
  Serious: No
  Sender: FDA-Public Use
  Company Number: US-ACADIA PHARMACEUTICALS INC.-ACA-2021-PIM-000030

PATIENT
  Sex: Male

DRUGS (11)
  1. APOKYN [Concomitant]
     Active Substance: APOMORPHINE HYDROCHLORIDE
  2. NUPLAZID [Suspect]
     Active Substance: PIMAVANSERIN TARTRATE
     Indication: PARKINSON^S DISEASE
     Dosage: 34 MILLIGRAM, QD
     Route: 048
     Dates: start: 20201211
  3. DULOXETINE. [Concomitant]
     Active Substance: DULOXETINE
  4. CARBIDOPA/LEVODOPA [Concomitant]
     Active Substance: CARBIDOPA\LEVODOPA
  5. PRAMIPEXOLE. [Concomitant]
     Active Substance: PRAMIPEXOLE
  6. ASPIRIN [ACETYLSALICYLIC ACID] [Concomitant]
     Active Substance: ASPIRIN
  7. APAP [Concomitant]
     Active Substance: ACETAMINOPHEN
  8. ALEVE [Concomitant]
     Active Substance: NAPROXEN SODIUM
  9. CYMBALTA [Concomitant]
     Active Substance: DULOXETINE HYDROCHLORIDE
  10. DONEPEZIL. [Concomitant]
     Active Substance: DONEPEZIL
  11. TAMSULOSIN [Concomitant]
     Active Substance: TAMSULOSIN

REACTIONS (1)
  - Hallucination [Not Recovered/Not Resolved]
